FAERS Safety Report 14151101 (Version 1)
Quarter: 2017Q4

REPORT INFORMATION
  Report Type: Spontaneous
  Country: US (occurrence: US)
  Receive Date: 20171102
  Receipt Date: 20171102
  Transmission Date: 20180321
  Serious: Yes (Life-Threatening, Other)
  Sender: FDA-Public Use
  Company Number: US-ACCORD-060576

PATIENT
  Age: 73 Year
  Sex: Male
  Weight: 93.4 kg

DRUGS (8)
  1. FENTANYL. [Interacting]
     Active Substance: FENTANYL
     Indication: SEDATION
     Dosage: 50 MCG/HOUR
  2. PROPOFOL. [Concomitant]
     Active Substance: PROPOFOL
     Indication: SEDATION
     Dosage: 20 MCG/KG/MINUTE
  3. QUETIAPINE/QUETIAPINE FUMARATE [Concomitant]
  4. CEFTRIAXONE. [Concomitant]
     Active Substance: CEFTRIAXONE
  5. FAMOTIDINE. [Concomitant]
     Active Substance: FAMOTIDINE
  6. METHYLPREDNISOLONE. [Concomitant]
     Active Substance: METHYLPREDNISOLONE
  7. DEXMEDETOMIDINE. [Suspect]
     Active Substance: DEXMEDETOMIDINE
     Indication: SEDATION
     Dosage: 0.3 MCG/KG/HOUR
  8. HEPARIN [Concomitant]
     Active Substance: HEPARIN SODIUM

REACTIONS (2)
  - Drug interaction [Unknown]
  - Bradycardia [Recovered/Resolved]
